FAERS Safety Report 17867885 (Version 1)
Quarter: 2020Q2

REPORT INFORMATION
  Report Type: Spontaneous
  Country: DE (occurrence: DE)
  Receive Date: 20200606
  Receipt Date: 20200606
  Transmission Date: 20200714
  Serious: Yes (Hospitalization)
  Sender: FDA-Public Use
  Company Number: DE-HETERO-HET2020DE00602

PATIENT
  Age: 13 Year
  Sex: Male
  Weight: 55 kg

DRUGS (2)
  1. LEVETIRACETAM. [Suspect]
     Active Substance: LEVETIRACETAM
     Indication: EPILEPSY
     Dosage: UNK
     Route: 048
  2. BUCCOLAM [Concomitant]
     Active Substance: MIDAZOLAM HYDROCHLORIDE
     Indication: SEIZURE
     Dosage: 10 MG
     Route: 002

REACTIONS (4)
  - Product administration error [Recovered/Resolved]
  - Treatment noncompliance [Recovered/Resolved]
  - Seizure [Recovered/Resolved]
  - Anticonvulsant drug level below therapeutic [Recovered/Resolved]

NARRATIVE: CASE EVENT DATE: 202001
